FAERS Safety Report 5032448-9 (Version None)
Quarter: 2006Q2

REPORT INFORMATION
  Report Type: 
  Country: None (occurrence: None)
  Receive Date: 20060620
  Receipt Date: 20060608
  Transmission Date: 20061013
  Serious: Yes (Death, Hospitalization)
  Sender: FDA-Public Use
  Company Number: US200605001722

PATIENT
  Age: 60 Year
  Sex: Female
  Weight: 103.4 kg

DRUGS (4)
  1. GEMCITABINE [Suspect]
     Indication: OVARIAN CANCER
     Dosage: 1000 MG/M2, INTRAVENOUS
     Route: 042
     Dates: start: 20060418, end: 20060425
  2. CARBOPLATIN [Suspect]
     Indication: OVARIAN CANCER
     Dosage: 6 UNK, OTHER, INTRAVENOUS
     Route: 042
     Dates: start: 20060418, end: 20060418
  3. HYDROCHLOROTHIAZIDE [Concomitant]
  4. NEXIUM [Concomitant]

REACTIONS (20)
  - ACTIVATED PARTIAL THROMBOPLASTIN TIME PROLONGED [None]
  - AMMONIA INCREASED [None]
  - ANTIBODY TEST POSITIVE [None]
  - BACTERIA URINE IDENTIFIED [None]
  - BLOOD ALBUMIN DECREASED [None]
  - DRUG TOXICITY [None]
  - ENTEROBACTER INFECTION [None]
  - FIBRIN D DIMER INCREASED [None]
  - HEPATIC CYST [None]
  - HEPATITIS [None]
  - HYPERBILIRUBINAEMIA [None]
  - ILL-DEFINED DISORDER [None]
  - INTERNATIONAL NORMALISED RATIO DECREASED [None]
  - OEDEMA PERIPHERAL [None]
  - PLEURAL EFFUSION [None]
  - PROTHROMBIN TIME PROLONGED [None]
  - PULMONARY EMBOLISM [None]
  - URINE ANALYSIS ABNORMAL [None]
  - VENOUS INSUFFICIENCY [None]
  - WHITE BLOOD CELL COUNT INCREASED [None]
